FAERS Safety Report 7971080-1 (Version None)
Quarter: 2011Q4

REPORT INFORMATION
  Report Type: 
  Country: None (occurrence: None)
  Receive Date: 20111212
  Receipt Date: 20111212
  Transmission Date: 20120403
  Serious: Yes (Hospitalization)
  Sender: FDA-Public Use
  Company Number: None

PATIENT
  Age: 30 Year
  Sex: Female
  Weight: 63.502 kg

DRUGS (2)
  1. ZOLOFT [Suspect]
     Indication: ANXIETY
     Dosage: 1
     Route: 002
     Dates: start: 20111101, end: 20111104
  2. ZOLOFT [Concomitant]
     Route: 048

REACTIONS (5)
  - CRYING [None]
  - ANXIETY [None]
  - GAIT DISTURBANCE [None]
  - DECREASED APPETITE [None]
  - INSOMNIA [None]
